FAERS Safety Report 24339963 (Version 2)
Quarter: 2024Q4

REPORT INFORMATION
  Report Type: Spontaneous
  Country: AR (occurrence: AR)
  Receive Date: 20240919
  Receipt Date: 20241018
  Transmission Date: 20250115
  Serious: No
  Sender: PFIZER
  Company Number: AR-PFIZER INC-202400257352

PATIENT
  Age: 11 Year
  Sex: Female

DRUGS (1)
  1. GENOTROPIN [Suspect]
     Active Substance: SOMATROPIN
     Indication: Short stature
     Dosage: MONDAY TO FRIDAY 1.8MG AND 2MG SATURDAY AND SUNDAY, 7 TIMES A WEEK
     Dates: start: 20211208, end: 20240912

REACTIONS (1)
  - Product packaging quantity issue [Unknown]
